FAERS Safety Report 6194123-7 (Version None)
Quarter: 2009Q2

REPORT INFORMATION
  Report Type: 
  Country: None (occurrence: None)
  Receive Date: 20090518
  Receipt Date: 20090515
  Transmission Date: 20091009
  Serious: Yes (Death)
  Sender: FDA-Public Use
  Company Number: PHEH2009US04945

PATIENT
  Sex: Female

DRUGS (1)
  1. TEKTURNA HCT [Suspect]

REACTIONS (1)
  - PANCREATITIS HAEMORRHAGIC [None]
